FAERS Safety Report 8286086 (Version 2)
Quarter: 2012Q4

REPORT INFORMATION
  Report Type: 
  Country: US (occurrence: US)
  Receive Date: 20111213
  Receipt Date: 20121003
  Transmission Date: 20130627
  Serious: Yes (Other)
  Sender: FDA-Public Use
  Company Number: US-ROCHE-1020763

PATIENT
  Sex: Female
  Weight: 97.61 kg

DRUGS (5)
  1. ACCUTANE [Suspect]
     Indication: CUTANEOUS LUPUS ERYTHEMATOSUS
     Route: 065
     Dates: start: 1990, end: 2002
  2. ACCUTANE [Suspect]
     Route: 065
     Dates: start: 2003, end: 2004
  3. DIOVAN [Concomitant]
  4. NORVASC [Concomitant]
  5. PREDNISONE [Concomitant]

REACTIONS (6)
  - Large intestine perforation [Unknown]
  - Colectomy [Unknown]
  - Irritable bowel syndrome [Unknown]
  - Colitis [Unknown]
  - Depression [Unknown]
  - Alopecia [Unknown]
